FAERS Safety Report 9626416 (Version 2)
Quarter: 2013Q4

REPORT INFORMATION
  Report Type: Spontaneous
  Country: US (occurrence: US)
  Receive Date: 20131016
  Receipt Date: 20131023
  Transmission Date: 20140711
  Serious: Yes (Death, Other)
  Sender: FDA-Public Use
  Company Number: US-GILEAD-2013-0085520

PATIENT
  Sex: 0

DRUGS (2)
  1. LETAIRIS [Suspect]
     Indication: PULMONARY HYPERTENSION
     Dosage: UNK UNKNOWN, UNK
     Route: 048
     Dates: start: 201104
  2. LETAIRIS [Suspect]
     Indication: CARDIAC VALVE DISEASE

REACTIONS (1)
  - Cardiac arrest [Fatal]
